FAERS Safety Report 18659276 (Version 4)
Quarter: 2021Q3

REPORT INFORMATION
  Report Type: Report from Study
  Country: AU (occurrence: AU)
  Receive Date: 20201224
  Receipt Date: 20210718
  Transmission Date: 20211014
  Serious: Yes (Other)
  Sender: FDA-Public Use
  Company Number: NVSC2020AU333024

PATIENT
  Age: 54 Year
  Sex: Male
  Weight: 98 kg

DRUGS (8)
  1. SYMMETREL [Concomitant]
     Active Substance: AMANTADINE HYDROCHLORIDE
     Indication: MUSCLE SPASTICITY
     Dosage: UNK
     Route: 065
     Dates: start: 20171012
  2. PRAMIPEXOLE. [Concomitant]
     Active Substance: PRAMIPEXOLE
     Indication: RESTLESS LEGS SYNDROME
     Dosage: UNK
     Route: 065
     Dates: start: 20191205
  3. OFATUMUMAB [Suspect]
     Active Substance: OFATUMUMAB
     Indication: MULTIPLE SCLEROSIS RELAPSE
     Dosage: 1 DF, QW
     Route: 058
     Dates: start: 20190621
  4. IDAPREX [Concomitant]
     Active Substance: PERINDOPRIL ERBUMINE
     Indication: HYPERTENSION
     Dosage: UNK
     Route: 065
     Dates: start: 20170915
  5. OFATUMUMAB [Suspect]
     Active Substance: OFATUMUMAB
     Indication: MULTIPLE SCLEROSIS RELAPSE
     Dosage: 20 MG, Q4W
     Route: 058
     Dates: start: 20190614
  6. FISH OIL [Concomitant]
     Active Substance: FISH OIL
     Indication: GENERAL PHYSICAL CONDITION
     Dosage: 1 OTHER, TID
     Route: 048
     Dates: start: 20140615
  7. BACLOFEN. [Concomitant]
     Active Substance: BACLOFEN
     Indication: MUSCLE SPASMS
     Dosage: 25 MG, QID
     Route: 065
     Dates: start: 20100601
  8. OSTEOMOL 665 PARACETAMOL [Concomitant]
     Indication: MUSCLE SPASTICITY
     Dosage: 665 MG, BID
     Route: 048
     Dates: start: 20171209, end: 20180108

REACTIONS (1)
  - Basal cell carcinoma [Recovered/Resolved]

NARRATIVE: CASE EVENT DATE: 20200604
